FAERS Safety Report 6371695-0 (Version None)
Quarter: 2009Q3

REPORT INFORMATION
  Report Type: 
  Country: None (occurrence: None)
  Receive Date: 20090923
  Receipt Date: 20080317
  Transmission Date: 20100115
  Serious: No
  Sender: FDA-Public Use
  Company Number: US-ASTRAZENECA-2008UW01176

PATIENT
  Age: 434 Month
  Sex: Female

DRUGS (5)
  1. SEROQUEL [Suspect]
     Indication: DEPRESSION
     Dosage: 25 MG TO 200 MG
     Route: 048
     Dates: start: 20060512, end: 20070101
  2. GLUCOPHAGE [Concomitant]
     Dosage: 500 TO 1000 MG
     Route: 065
  3. ASPIRIN [Concomitant]
     Route: 065
  4. BACTRIUM [Concomitant]
     Route: 065
  5. MEVACOR [Concomitant]
     Route: 065

REACTIONS (9)
  - CHEST INJURY [None]
  - COUGH [None]
  - DIABETES MELLITUS INADEQUATE CONTROL [None]
  - INFLUENZA [None]
  - LIMB INJURY [None]
  - OROPHARYNGEAL PAIN [None]
  - SNEEZING [None]
  - TYPE 2 DIABETES MELLITUS [None]
  - VAGINAL ABSCESS [None]
